FAERS Safety Report 8166895-3 (Version None)
Quarter: 2012Q1

REPORT INFORMATION
  Report Type: 
  Country: None (occurrence: None)
  Receive Date: 20120227
  Receipt Date: 20120214
  Transmission Date: 20120608
  Serious: No
  Sender: FDA-Public Use
  Company Number: US-JNJFOC-20120208048

PATIENT
  Sex: Male

DRUGS (6)
  1. SEROVIT [Concomitant]
     Route: 065
  2. GLUCOPHAGE [Concomitant]
     Indication: DIABETES MELLITUS
     Route: 048
  3. INVEGA SUSTENNA [Suspect]
     Indication: SCHIZOPHRENIA
     Route: 030
     Dates: start: 20111001
  4. LANTUS [Concomitant]
     Indication: DIABETES MELLITUS
     Route: 058
  5. JANUVIA [Concomitant]
     Indication: DIABETES MELLITUS
     Route: 048
  6. INDERAL [Concomitant]
     Route: 048

REACTIONS (1)
  - INJECTION SITE NODULE [None]
